FAERS Safety Report 5857647-5 (Version None)
Quarter: 2008Q3

REPORT INFORMATION
  Report Type: 
  Country: None (occurrence: None)
  Receive Date: 20080825
  Receipt Date: 20080825
  Transmission Date: 20090109
  Serious: Yes (Other)
  Sender: FDA-Public Use
  Company Number: None

PATIENT
  Age: 57 Year
  Sex: Female
  Weight: 81.6475 kg

DRUGS (2)
  1. ULTRAM [Suspect]
     Indication: FIBROMYALGIA
     Dosage: 100 MG 1 AT HS PO
     Route: 048
  2. ULTRAM [Suspect]
     Indication: OSTEOARTHRITIS
     Dosage: 100 MG 1 AT HS PO
     Route: 048

REACTIONS (7)
  - AGITATION [None]
  - COLD SWEAT [None]
  - EARLY MORNING AWAKENING [None]
  - INITIAL INSOMNIA [None]
  - MIDDLE INSOMNIA [None]
  - NAUSEA [None]
  - PALLOR [None]
